FAERS Safety Report 17278881 (Version 1)
Quarter: 2020Q1

REPORT INFORMATION
  Report Type: Spontaneous
  Country: DE (occurrence: DE)
  Receive Date: 20200116
  Receipt Date: 20200116
  Transmission Date: 20200409
  Serious: Yes (Death, Other)
  Sender: FDA-Public Use
  Company Number: DE-ASTRAZENECA-2020SE06828

PATIENT
  Age: 21 Year
  Sex: Male

DRUGS (4)
  1. OLAPARIB. [Suspect]
     Active Substance: OLAPARIB
     Indication: BRCA2 GENE MUTATION
     Dosage: UNK
     Route: 048
  2. OLAPARIB. [Suspect]
     Active Substance: OLAPARIB
     Indication: OSTEOSARCOMA METASTATIC
     Dosage: UNK
     Route: 048
  3. OLAPARIB. [Suspect]
     Active Substance: OLAPARIB
     Indication: BRCA1 GENE MUTATION
     Dosage: UNK
     Route: 048
  4. OLAPARIB. [Suspect]
     Active Substance: OLAPARIB
     Indication: METASTASES TO LUNG
     Dosage: UNK
     Route: 048

REACTIONS (1)
  - Death [Fatal]
